FAERS Safety Report 25551607 (Version 1)
Quarter: 2025Q3

REPORT INFORMATION
  Report Type: Spontaneous
  Country: US (occurrence: None)
  Receive Date: 20250711
  Receipt Date: 20250711
  Transmission Date: 20251021
  Serious: Yes (Other)
  Sender: FDA-CTU
  Company Number: None

PATIENT
  Age: 18 Year
  Sex: Female
  Weight: 76.5 kg

DRUGS (19)
  1. BENADRYL ALLERGY ULTRATAB [Suspect]
     Active Substance: DIPHENHYDRAMINE HYDROCHLORIDE
     Indication: Hypersensitivity
     Dosage: OTHER QUANTITY : 1 TABLET(S);?FREQUENCY : EVERY 6 HOURS;?
     Route: 048
     Dates: start: 20250702, end: 20250703
  2. CHLORHEXIDINE [Suspect]
     Active Substance: CHLORHEXIDINE
  3. OMEPRAZOLE [Concomitant]
     Active Substance: OMEPRAZOLE
  4. LACOSAMIDE [Concomitant]
     Active Substance: LACOSAMIDE
  5. AZSTARYS [Concomitant]
     Active Substance: DEXMETHYLPHENIDATE HYDROCHLORIDE\SERDEXMETHYLPHENIDATE CHLORIDE
  6. fludrocortizone [Concomitant]
  7. hailey fe [Concomitant]
  8. GABAPENTIN [Concomitant]
     Active Substance: GABAPENTIN
  9. SERTRALINE [Concomitant]
     Active Substance: SERTRALINE HYDROCHLORIDE
  10. BUSPIRONE [Concomitant]
     Active Substance: BUSPIRONE HYDROCHLORIDE
  11. GLYCOPYRROLATE [Concomitant]
     Active Substance: GLYCOPYRROLATE
  12. DIAZEPAM [Concomitant]
     Active Substance: DIAZEPAM
  13. PROMETHAZINE [Concomitant]
     Active Substance: PROMETHAZINE HYDROCHLORIDE
  14. ONDANSETRON [Concomitant]
     Active Substance: ONDANSETRON
  15. auvi-q/epinephrine [Concomitant]
  16. clindamyacin topical solution [Concomitant]
  17. HYDROCORTISONE [Concomitant]
     Active Substance: HYDROCORTISONE
  18. SODIUM CHLORIDE [Concomitant]
     Active Substance: SODIUM CHLORIDE
  19. Bard PowerPort implant Speedicath catheters [Concomitant]

REACTIONS (14)
  - Rash [None]
  - Rash [None]
  - Rash [None]
  - Documented hypersensitivity to administered product [None]
  - Mania [None]
  - Insomnia [None]
  - Decreased appetite [None]
  - Urinary retention [None]
  - Emotional distress [None]
  - Restlessness [None]
  - Fatigue [None]
  - Dehydration [None]
  - Seizure [None]
  - Mood swings [None]

NARRATIVE: CASE EVENT DATE: 20250702
